FAERS Safety Report 18503391 (Version 1)
Quarter: 2020Q4

REPORT INFORMATION
  Report Type: Spontaneous
  Country: US (occurrence: US)
  Receive Date: 20201113
  Receipt Date: 20201113
  Transmission Date: 20210114
  Serious: Yes (Other)
  Sender: FDA-Public Use
  Company Number: US-PRINSTON PHARMACEUTICAL INC.-2020PRN00378

PATIENT
  Age: 48 Year
  Sex: Male

DRUGS (11)
  1. PALIPERIDONE. [Suspect]
     Active Substance: PALIPERIDONE
     Indication: PSYCHOTIC DISORDER
     Dosage: 234 MG, 1X/MONTH (EVERY 4 WEEKS)
     Route: 030
  2. CLOZAPINE. [Concomitant]
     Active Substance: CLOZAPINE
     Dosage: 300 MG, 1X/DAY AT 9:00 PM
     Route: 048
  3. CLOZAPINE. [Concomitant]
     Active Substance: CLOZAPINE
     Dosage: 150 MG, 1X/DAY AT 9:00 AM
     Route: 048
  4. CLOZAPINE. [Concomitant]
     Active Substance: CLOZAPINE
     Dosage: 150 MG/200 MG DAILY
     Route: 048
  5. ARIPIPRAZOLE. [Suspect]
     Active Substance: ARIPIPRAZOLE
     Dosage: 15 MG
     Route: 065
  6. ARIPIPRAZOLE. [Suspect]
     Active Substance: ARIPIPRAZOLE
     Indication: PSYCHOTIC DISORDER
     Dosage: 5 MG
     Route: 065
  7. UNSPECIFIED TREATMENT FOR CONSTIPATION [Concomitant]
     Route: 065
  8. UNSPECIFIED TREATMENT FOR TYPE 2 DIABETES [Concomitant]
     Route: 065
  9. ARIPIPRAZOLE. [Suspect]
     Active Substance: ARIPIPRAZOLE
     Dosage: TAPERED
     Route: 065
  10. UNSPECIFIED TREATMENT FOR HYPERLIPIDEMIA [Concomitant]
     Route: 065
  11. UNSPECIFIED TREATMENT FOR HYPERTENSION [Concomitant]
     Route: 065

REACTIONS (1)
  - Pleurothotonus [Recovered/Resolved]
